FAERS Safety Report 6618593-2 (Version None)
Quarter: 2010Q1

REPORT INFORMATION
  Report Type: 
  Country: None (occurrence: None)
  Receive Date: 20100308
  Receipt Date: 20100226
  Transmission Date: 20100710
  Serious: Yes (Death, Hospitalization)
  Sender: FDA-Public Use
  Company Number: GXKR2010CZ02424

PATIENT
  Sex: Male

DRUGS (1)
  1. AZITHROMYCIN [Suspect]
     Indication: TRACHEITIS
     Dosage: 1 DF, QD
     Route: 048
     Dates: start: 20100211, end: 20100213

REACTIONS (2)
  - GASTROINTESTINAL HAEMORRHAGE [None]
  - RASH [None]
